FAERS Safety Report 9515681 (Version 1)
Quarter: 2013Q3

REPORT INFORMATION
  Report Type: Spontaneous
  Country: US (occurrence: US)
  Receive Date: 20130911
  Receipt Date: 20130911
  Transmission Date: 20140515
  Serious: No
  Sender: FDA-Public Use
  Company Number: US-009507513-1308USA009266

PATIENT
  Sex: Male

DRUGS (1)
  1. PEGINTRON [Suspect]
     Indication: HEPATITIS B
     Dosage: REDIPEN
     Dates: start: 20130708

REACTIONS (8)
  - Increased upper airway secretion [Unknown]
  - Influenza [Unknown]
  - Pain [Unknown]
  - Oropharyngeal pain [Unknown]
  - Insomnia [Unknown]
  - Chills [Unknown]
  - Headache [Unknown]
  - Cough [Unknown]
